FAERS Safety Report 5729010-9 (Version None)
Quarter: 2008Q2

REPORT INFORMATION
  Report Type: 
  Country: None (occurrence: None)
  Receive Date: 20080505
  Receipt Date: 20080505
  Transmission Date: 20081010
  Serious: Yes (Disabling, Other)
  Sender: FDA-Public Use
  Company Number: None

PATIENT
  Age: 36 Year
  Sex: Female
  Weight: 61.2356 kg

DRUGS (2)
  1. CLINDAMYCIN HCL [Suspect]
     Indication: ENDODONTIC PROCEDURE
     Dosage: 150 MG (300 MG 1ST DOSE) 4X/DAY PILL
     Dates: start: 20071130, end: 20071201
  2. LIDOCAINE [Concomitant]

REACTIONS (3)
  - DIZZINESS [None]
  - NYSTAGMUS [None]
  - VERTIGO [None]
